FAERS Safety Report 18543496 (Version 1)
Quarter: 2020Q4

REPORT INFORMATION
  Report Type: Spontaneous
  Country: GB (occurrence: GB)
  Receive Date: 20201125
  Receipt Date: 20201125
  Transmission Date: 20210114
  Serious: Yes (Other)
  Sender: FDA-Public Use
  Company Number: GB-TEVA-2020-GB-1851471

PATIENT
  Age: 65 Year
  Sex: Male
  Weight: 94 kg

DRUGS (9)
  1. METHOTREXATE. [Suspect]
     Active Substance: METHOTREXATE
     Dosage: 15MILLIGRAM
     Dates: start: 20200402
  2. MOMETASONE [Concomitant]
     Active Substance: MOMETASONE
     Dosage: APPLY TO TORSO AND LIMBS AS DIRECTED...:UNIT DOSE:1DOSAGEFORM
     Dates: start: 20200402
  3. DERMOL [Concomitant]
     Active Substance: BENZALKONIUM CHLORIDE\CHLORHEXIDINE HYDROCHLORIDE\ISOPROPYL MYRISTATE\PARAFFIN
     Dosage: USE AS DIRECTED BY DERMATOLOGY
     Dates: start: 20200402
  4. TADALAFIL. [Concomitant]
     Active Substance: TADALAFIL
     Dosage: USE AS DIRECTED
     Dates: start: 20120924
  5. ATORVASTATIN [Concomitant]
     Active Substance: ATORVASTATIN
     Dosage: UNIT DOSE:1DOSAGEFORM
     Dates: start: 20190423
  6. FOLIC ACID. [Concomitant]
     Active Substance: FOLIC ACID
     Dosage: EXCEPT ON METHOTREXA...:UNIT DOSE:1DOSAGEFORM
     Dates: start: 20200520
  7. PERINDOPRIL TERT-BUTYLAMINE [Concomitant]
     Active Substance: PERINDOPRIL ERBUMINE
     Dosage: UNIT DOSE:1DOSAGEFORM
     Dates: start: 20120128
  8. FEXOFENADINE [Concomitant]
     Active Substance: FEXOFENADINE HYDROCHLORIDE
     Dosage: UNIT DOSE:2DOSAGEFORM
     Dates: start: 20141013
  9. BALNEUM [Concomitant]
     Dosage: APPLY AS DIRECTED:UNIT DOSE:1DOSAGEFORM
     Dates: start: 20201014

REACTIONS (2)
  - Drug ineffective [Unknown]
  - Sexual dysfunction [Unknown]

NARRATIVE: CASE EVENT DATE: 20200402
